FAERS Safety Report 9922379 (Version 4)
Quarter: 2014Q2

REPORT INFORMATION
  Report Type: Spontaneous
  Country: ES (occurrence: ES)
  Receive Date: 20140225
  Receipt Date: 20140403
  Transmission Date: 20141212
  Serious: Yes (Other)
  Sender: FDA-Public Use
  Company Number: ES-AMGEN-ESPSP2014008448

PATIENT
  Age: 64 Year
  Sex: Female

DRUGS (1)
  1. ENBREL [Suspect]
     Indication: RHEUMATOID ARTHRITIS
     Dosage: 50 MG, UNK
     Route: 065

REACTIONS (6)
  - Blood glucose increased [Unknown]
  - Headache [Recovered/Resolved]
  - Hypoaesthesia [Recovered/Resolved]
  - Diarrhoea [Unknown]
  - Nausea [Unknown]
  - Pain in extremity [Not Recovered/Not Resolved]
